FAERS Safety Report 23790810 (Version 1)
Quarter: 2024Q2

REPORT INFORMATION
  Report Type: Spontaneous
  Country: US (occurrence: US)
  Receive Date: 20240427
  Receipt Date: 20240427
  Transmission Date: 20240716
  Serious: Yes (Other)
  Sender: FDA-Public Use
  Company Number: US-AUROBINDO-AUR-APL-2024-016739

PATIENT

DRUGS (1)
  1. LOSARTAN POTASSIUM [Suspect]
     Active Substance: LOSARTAN POTASSIUM
     Indication: Product used for unknown indication
     Dosage: UNK (IT WAS REFILLED ON 9/12/23 AND THE LOSARTAN WAS MADE BY AUROBINDO PHARM...USA)
     Route: 065

REACTIONS (9)
  - Choking [Unknown]
  - Cough [Recovering/Resolving]
  - Asthenia [Unknown]
  - Lethargy [Unknown]
  - Brain fog [Unknown]
  - Dizziness [Unknown]
  - Gait disturbance [Unknown]
  - Headache [Unknown]
  - Product substitution issue [Unknown]
